FAERS Safety Report 9204060 (Version 1)
Quarter: 2013Q1

REPORT INFORMATION
  Report Type: Spontaneous
  Country: US (occurrence: None)
  Receive Date: 20130329
  Receipt Date: 20130329
  Transmission Date: 20140127
  Serious: No
  Sender: FDA-Public Use
  Company Number: None

PATIENT
  Age: 9 Year
  Sex: Female
  Weight: 35.83 kg

DRUGS (2)
  1. MONTELUKAST [Suspect]
     Indication: ASTHMA
     Route: 048
     Dates: start: 20090904, end: 20130326
  2. MONTELUKAST [Suspect]
     Indication: RHINITIS ALLERGIC
     Route: 048
     Dates: start: 20090904, end: 20130326

REACTIONS (1)
  - Tic [None]
